FAERS Safety Report 22033252 (Version 1)
Quarter: 2023Q1

REPORT INFORMATION
  Report Type: Spontaneous
  Country: US (occurrence: None)
  Receive Date: 20230224
  Receipt Date: 20230224
  Transmission Date: 20230418
  Serious: Yes (Other)
  Sender: FDA-Public Use
  Company Number: US-ROCHE-3291131

PATIENT
  Sex: Female

DRUGS (4)
  1. XOLAIR [Suspect]
     Active Substance: OMALIZUMAB
     Indication: Chronic spontaneous urticaria
     Route: 058
  2. PREDNISONE [Concomitant]
     Active Substance: PREDNISONE
  3. ALLEGRA [Concomitant]
     Active Substance: FEXOFENADINE HYDROCHLORIDE
  4. OTEZLA [Concomitant]
     Active Substance: APREMILAST
     Indication: Psoriasis

REACTIONS (5)
  - Anaphylactic reaction [Unknown]
  - Gastrointestinal pain [Unknown]
  - Lip swelling [Unknown]
  - Throat tightness [Unknown]
  - Cough [Unknown]
